FAERS Safety Report 18183896 (Version 1)
Quarter: 2020Q3

REPORT INFORMATION
  Report Type: Spontaneous
  Country: NO (occurrence: NO)
  Receive Date: 20200823
  Receipt Date: 20200823
  Transmission Date: 20201103
  Serious: Yes (Life-Threatening, Hospitalization)
  Sender: FDA-Public Use
  Company Number: NO-ASTRAZENECA-2020SF00935

PATIENT
  Age: 49 Year
  Sex: Female

DRUGS (5)
  1. ZOMIG [Suspect]
     Active Substance: ZOLMITRIPTAN
     Dosage: ADMINISTERED THE SAME DAY AS THE EVENT (25/JULY/2020). DATES FOR THERAPY START AND END ARE UNKNOWN.
     Route: 045
  2. MOVICOL [Concomitant]
     Active Substance: POLYETHYLENE GLYCOL 3350\POTASSIUM CHLORIDE\SODIUM BICARBONATE\SODIUM CHLORIDE
     Route: 065
  3. SAROTEX [Concomitant]
     Active Substance: AMITRIPTYLINE HYDROCHLORIDE
     Indication: MIGRAINE
     Route: 065
  4. ATACAND [Concomitant]
     Active Substance: CANDESARTAN CILEXETIL
     Indication: MIGRAINE
     Route: 065
  5. ATACAND [Concomitant]
     Active Substance: CANDESARTAN CILEXETIL
     Indication: HYPERTENSION
     Route: 065

REACTIONS (3)
  - Haemorrhage [Recovering/Resolving]
  - Hypotension [Recovering/Resolving]
  - Colitis ischaemic [Recovering/Resolving]

NARRATIVE: CASE EVENT DATE: 20200725
